FAERS Safety Report 8233455-5 (Version None)
Quarter: 2012Q1

REPORT INFORMATION
  Report Type: 
  Country: None (occurrence: None)
  Receive Date: 20120326
  Receipt Date: 20120315
  Transmission Date: 20120608
  Serious: Yes (Other)
  Sender: FDA-Public Use
  Company Number: US-PERRIGO-12US002276

PATIENT
  Sex: Female
  Weight: 48.526 kg

DRUGS (2)
  1. DOXYLAMINE SUCCINATE [Suspect]
     Dosage: 1/2 TABLET, HS
     Route: 048
     Dates: start: 20120311, end: 20120311
  2. DOXYLAMINE SUCCINATE [Suspect]
     Indication: INSOMNIA
     Dosage: ONE TABLET, HS
     Route: 048
     Dates: start: 20120213, end: 20120213

REACTIONS (3)
  - LOSS OF CONSCIOUSNESS [None]
  - UNDERDOSE [None]
  - GRAND MAL CONVULSION [None]
